FAERS Safety Report 19886480 (Version 3)
Quarter: 2022Q1

REPORT INFORMATION
  Report Type: Report from Study
  Country: US (occurrence: US)
  Receive Date: 20210928
  Receipt Date: 20220318
  Transmission Date: 20220424
  Serious: Yes (Other)
  Sender: FDA-Public Use
  Company Number: US-NOVARTISTESTPH-NVSC2021US218806

PATIENT
  Sex: Male

DRUGS (3)
  1. ENTRESTO [Suspect]
     Active Substance: SACUBITRIL\VALSARTAN
     Indication: Product used for unknown indication
     Dosage: 1 DOSAGE FORM, BID (49/51 MG)
     Route: 048
     Dates: start: 2019
  2. LYRICA [Concomitant]
     Active Substance: PREGABALIN
     Indication: Psoriatic arthropathy
     Dosage: UNK
     Route: 065
  3. LYRICA [Concomitant]
     Active Substance: PREGABALIN
     Indication: Osteoarthritis

REACTIONS (6)
  - Angina pectoris [Unknown]
  - Coronary artery occlusion [Unknown]
  - Memory impairment [Not Recovered/Not Resolved]
  - Pollakiuria [Unknown]
  - Pain [Recovering/Resolving]
  - Mobility decreased [Unknown]
